FAERS Safety Report 9856068 (Version 3)
Quarter: 2014Q1

REPORT INFORMATION
  Report Type: Report from Study
  Country: DE (occurrence: DE)
  Receive Date: 20140130
  Receipt Date: 20140303
  Transmission Date: 20141002
  Serious: Yes (Hospitalization)
  Sender: FDA-Public Use
  Company Number: PHHY2014DE009999

PATIENT
  Sex: Male

DRUGS (2)
  1. EXTAVIA [Suspect]
     Indication: MULTIPLE SCLEROSIS
     Dosage: 250 UG, QOD
     Route: 058
     Dates: start: 20131205
  2. EXTAVIA [Suspect]
     Dosage: 250 UG, QOD
     Route: 058

REACTIONS (2)
  - Blood test abnormal [Recovering/Resolving]
  - Gastroenteritis norovirus [Recovering/Resolving]
